FAERS Safety Report 8167235-6 (Version None)
Quarter: 2012Q1

REPORT INFORMATION
  Report Type: 
  Country: None (occurrence: None)
  Receive Date: 20120221
  Receipt Date: 20120206
  Transmission Date: 20120608
  Serious: Yes (Hospitalization, Other)
  Sender: FDA-Public Use
  Company Number: MCA-N-12-006

PATIENT
  Age: 71 Year
  Sex: Female

DRUGS (1)
  1. AMLODIPINE [Suspect]
     Indication: DIABETIC NEPHROPATHY
     Dosage: 5 MG

REACTIONS (19)
  - BLISTER [None]
  - HEART RATE INCREASED [None]
  - HYPERTENSION [None]
  - BLOOD UREA INCREASED [None]
  - URTICARIA [None]
  - RASH ERYTHEMATOUS [None]
  - OROPHARYNGEAL PAIN [None]
  - STEVENS-JOHNSON SYNDROME [None]
  - RASH PRURITIC [None]
  - WOUND [None]
  - SKIN EXFOLIATION [None]
  - TOXIC EPIDERMAL NECROLYSIS [None]
  - SEDATION [None]
  - BLOOD CREATININE INCREASED [None]
  - FLUID IMBALANCE [None]
  - OROPHARYNGEAL BLISTERING [None]
  - SKIN LESION [None]
  - HYPOTENSION [None]
  - RASH MACULO-PAPULAR [None]
